FAERS Safety Report 7553045-7 (Version None)
Quarter: 2011Q2

REPORT INFORMATION
  Report Type: 
  Country: None (occurrence: None)
  Receive Date: 20110616
  Receipt Date: 20110607
  Transmission Date: 20111010
  Serious: Yes (Hospitalization, Other)
  Sender: FDA-Public Use
  Company Number: GB-ABBOTT-11P-167-0719923-00

PATIENT
  Sex: Male
  Weight: 108 kg

DRUGS (3)
  1. HUMIRA [Suspect]
     Indication: PSORIASIS
     Route: 058
     Dates: start: 20100830, end: 20110401
  2. METHOTREXATE [Concomitant]
     Indication: PSORIASIS
     Route: 048
     Dates: start: 20100201, end: 20110401
  3. FOLIC ACID [Concomitant]
     Indication: PSORIASIS
     Route: 048
     Dates: start: 20100201, end: 20110401

REACTIONS (7)
  - NIGHT SWEATS [None]
  - PYREXIA [None]
  - SARCOIDOSIS [None]
  - DYSPNOEA [None]
  - WEIGHT DECREASED [None]
  - COUGH [None]
  - LYMPHADENOPATHY [None]
